FAERS Safety Report 9087253 (Version 2)
Quarter: 2013Q1

REPORT INFORMATION
  Report Type: Spontaneous
  Country: FR (occurrence: FR)
  Receive Date: 20130131
  Receipt Date: 20130304
  Transmission Date: 20140127
  Serious: Yes (Hospitalization)
  Sender: FDA-Public Use
  Company Number: FR-PFIZER INC-2013031233

PATIENT
  Age: 58 Year
  Sex: Female

DRUGS (6)
  1. ADVIL [Suspect]
     Indication: NASOPHARYNGITIS
     Dosage: UNK, DAILY
     Dates: start: 201204, end: 201204
  2. AMOXICILLIN [Suspect]
     Indication: NASOPHARYNGITIS
     Dosage: UNK, DAILY
     Dates: start: 201204, end: 201204
  3. MUCOMYST [Suspect]
     Indication: NASOPHARYNGITIS
     Dosage: UNK, DAILY
     Dates: start: 201204, end: 201204
  4. AUGMENTIN [Suspect]
     Indication: OTITIS MEDIA
     Dosage: UNK, DAILY
     Dates: start: 20120422, end: 20120424
  5. SOLUPRED [Suspect]
     Indication: OTITIS MEDIA
     Dosage: UNK, DAILY
     Dates: start: 20120422, end: 20120424
  6. PARACETAMOL [Concomitant]
     Indication: NASOPHARYNGITIS
     Dosage: UNK
     Dates: start: 201204

REACTIONS (9)
  - Thrombocytopenia [Recovered/Resolved]
  - Agranulocytosis [Recovered/Resolved]
  - Laryngeal pain [Unknown]
  - Odynophagia [Unknown]
  - Ear pain [Unknown]
  - Rhinorrhoea [Unknown]
  - Lymphadenopathy [Unknown]
  - White blood cell count increased [Unknown]
  - Anaemia [Recovered/Resolved]
